FAERS Safety Report 14390436 (Version 3)
Quarter: 2018Q3

REPORT INFORMATION
  Report Type: Spontaneous
  Country: US (occurrence: US)
  Receive Date: 20180116
  Receipt Date: 20180821
  Transmission Date: 20181010
  Serious: Yes (Other)
  Sender: FDA-Public Use
  Company Number: US-ASTRAZENECA-2018SE03954

PATIENT
  Age: 1014 Month
  Sex: Female
  Weight: 91.6 kg

DRUGS (40)
  1. TRIAMTERENE?HCTZ [Concomitant]
     Active Substance: HYDROCHLOROTHIAZIDE\TRIAMTERENE
     Indication: ESSENTIAL HYPERTENSION
     Route: 065
     Dates: start: 1999
  2. PREMPRO [Concomitant]
     Active Substance: ESTROGENS, CONJUGATED\MEDROXYPROGESTERONE ACETATE
     Indication: MENOPAUSE
     Route: 065
     Dates: start: 1999
  3. BENZONATATE. [Concomitant]
     Active Substance: BENZONATATE
     Route: 065
     Dates: start: 2000
  4. KLOR?CON [Concomitant]
     Active Substance: POTASSIUM CHLORIDE
     Route: 065
     Dates: start: 2004
  5. FLUCONAZOLE. [Concomitant]
     Active Substance: FLUCONAZOLE
     Route: 065
     Dates: start: 2005
  6. DETROL [Concomitant]
     Active Substance: TOLTERODINE TARTRATE
     Route: 065
     Dates: start: 2007
  7. SINGULAIR [Concomitant]
     Active Substance: MONTELUKAST SODIUM
     Route: 065
     Dates: start: 2008
  8. TRAMADOL. [Concomitant]
     Active Substance: TRAMADOL
     Route: 065
     Dates: start: 2009
  9. TYLENOL [Concomitant]
     Active Substance: ACETAMINOPHEN
     Indication: ARTHRALGIA
     Route: 065
     Dates: start: 2014
  10. VITAMIN D [Concomitant]
     Active Substance: CHOLECALCIFEROL
     Indication: VITAMIN D DEFICIENCY
     Route: 065
     Dates: start: 2017
  11. PLENDIL [Concomitant]
     Active Substance: FELODIPINE
     Route: 065
     Dates: start: 2004
  12. NAPROXEN. [Concomitant]
     Active Substance: NAPROXEN
     Route: 065
     Dates: start: 2007
  13. HYDROXYZINE [Concomitant]
     Active Substance: HYDROXYZINE HYDROCHLORIDE
     Route: 065
     Dates: start: 2007
  14. DICLOFENAC [Concomitant]
     Active Substance: DICLOFENAC
     Indication: OSTEOARTHRITIS
     Route: 065
     Dates: start: 2017
  15. FELODIPINE. [Concomitant]
     Active Substance: FELODIPINE
     Indication: ESSENTIAL HYPERTENSION
     Route: 065
     Dates: start: 2004
  16. FLUTICASONE PROPIONATE. [Concomitant]
     Active Substance: FLUTICASONE PROPIONATE
     Indication: RHINITIS ALLERGIC
     Route: 065
  17. LOSARTAN POTASSIUM. [Concomitant]
     Active Substance: LOSARTAN POTASSIUM
     Indication: ESSENTIAL HYPERTENSION
     Route: 065
     Dates: start: 2013
  18. VESICARE [Concomitant]
     Active Substance: SOLIFENACIN SUCCINATE
     Indication: HYPERTONIC BLADDER
     Route: 065
     Dates: start: 2006
  19. METRONIDAZOLE. [Concomitant]
     Active Substance: METRONIDAZOLE
     Route: 065
     Dates: start: 1999
  20. AZELASTINE. [Concomitant]
     Active Substance: AZELASTINE HYDROCHLORIDE
     Route: 065
     Dates: start: 2013
  21. TRIAMTERENE? HYDROCHLOROTHIAZIDE [Concomitant]
     Indication: HYPERTENSION
     Route: 065
     Dates: start: 2013, end: 2017
  22. MACROBID [Concomitant]
     Active Substance: NITROFURANTOIN\NITROFURANTOIN MONOHYDRATE
     Route: 065
     Dates: start: 2000
  23. MELOXICAM. [Concomitant]
     Active Substance: MELOXICAM
     Route: 065
     Dates: start: 2012
  24. RANITIDINE. [Concomitant]
     Active Substance: RANITIDINE
     Route: 065
     Dates: start: 2014
  25. IRON [Concomitant]
     Active Substance: IRON
     Indication: ANAEMIA
     Route: 065
     Dates: start: 2016
  26. NEXIUM [Suspect]
     Active Substance: ESOMEPRAZOLE MAGNESIUM
     Indication: GASTROOESOPHAGEAL REFLUX DISEASE
     Dosage: 40.0MG UNKNOWN
     Route: 048
     Dates: start: 2004, end: 2009
  27. LEVAQUIN [Concomitant]
     Active Substance: LEVOFLOXACIN
     Route: 065
     Dates: start: 2000
  28. CYCLOBENZAPRINE. [Concomitant]
     Active Substance: CYCLOBENZAPRINE
     Route: 065
     Dates: start: 2007
  29. TOVIAZ [Concomitant]
     Active Substance: FESOTERODINE FUMARATE
     Indication: HYPERTONIC BLADDER
     Route: 065
     Dates: start: 2010, end: 2016
  30. GABAPENTIN. [Concomitant]
     Active Substance: GABAPENTIN
     Indication: POST HERPETIC NEURALGIA
     Route: 065
     Dates: start: 2009
  31. TERAZOL [Concomitant]
     Active Substance: TERCONAZOLE
     Route: 065
     Dates: start: 2005
  32. ALLEGRA?D [Concomitant]
     Active Substance: FEXOFENADINE\PSEUDOEPHEDRINE
     Route: 065
     Dates: start: 2007
  33. ENABLEX [Concomitant]
     Active Substance: DARIFENACIN HYDROBROMIDE
     Route: 065
     Dates: start: 2010
  34. OMEPRAZOLE. [Suspect]
     Active Substance: OMEPRAZOLE
     Indication: GASTROOESOPHAGEAL REFLUX DISEASE
     Dosage: GENERIC
     Route: 048
     Dates: start: 2009, end: 2017
  35. CLOTRIMAZOLE AND BETAMETHASONE DIPROPIONATE [Concomitant]
     Active Substance: BETAMETHASONE\BETAMETHASONE DIPROPIONATE\CLOTRIMAZOLE
     Indication: CANDIDA INFECTION
     Route: 065
     Dates: start: 2017
  36. PROPOXYPHENE? ACETAMINOPHEN [Concomitant]
     Route: 065
     Dates: start: 2005
  37. ENALAPRIL [Concomitant]
     Active Substance: ENALAPRIL
     Route: 065
     Dates: start: 2013
  38. NEXIUM [Suspect]
     Active Substance: ESOMEPRAZOLE MAGNESIUM
     Indication: GASTROOESOPHAGEAL REFLUX DISEASE
     Dosage: 40.0MG UNKNOWN
     Route: 048
     Dates: start: 2004, end: 2009
  39. FUROSEMIDE. [Concomitant]
     Active Substance: FUROSEMIDE
     Indication: HYPERTENSION
     Route: 065
     Dates: start: 2010, end: 2014
  40. METAXALONE. [Concomitant]
     Active Substance: METAXALONE
     Route: 065
     Dates: start: 2010

REACTIONS (2)
  - Renal injury [Unknown]
  - Chronic kidney disease [Not Recovered/Not Resolved]

NARRATIVE: CASE EVENT DATE: 201412
